FAERS Safety Report 4475558-7 (Version None)
Quarter: 2004Q3

REPORT INFORMATION
  Report Type: 
  Country: None (occurrence: None)
  Receive Date: 20040923
  Receipt Date: 20040809
  Transmission Date: 20050211
  Serious: No
  Sender: FDA-Public Use
  Company Number: US_0408104999

PATIENT
  Age: 74 Year
  Sex: Female

DRUGS (5)
  1. FORTEO [Suspect]
     Indication: OSTEOPOROSIS
     Dosage: 20 UG DAY
     Dates: start: 20030901
  2. CALCIUM PLUS D [Concomitant]
  3. MAGNESIUM (MAGNESIUM ASPARTATE) [Concomitant]
  4. LEVOXYL [Concomitant]
  5. VITAMIN B COMPLEX CAP [Concomitant]

REACTIONS (3)
  - ASTHENIA [None]
  - FATIGUE [None]
  - MUSCLE CRAMP [None]
